FAERS Safety Report 7344715-4 (Version None)
Quarter: 2011Q1

REPORT INFORMATION
  Report Type: 
  Country: None (occurrence: None)
  Receive Date: 20110310
  Receipt Date: 20110225
  Transmission Date: 20110831
  Serious: Yes (Other)
  Sender: FDA-Public Use
  Company Number: PHHY2011CH08204

PATIENT
  Sex: Female

DRUGS (8)
  1. MARCOUMAR [Concomitant]
  2. ALLOPURINOL [Concomitant]
  3. ZURCAL [Concomitant]
  4. CONCOR [Concomitant]
     Indication: PROPHYLAXIS
     Dates: start: 20091201
  5. PAROXETINE HCL [Concomitant]
  6. GLEEVEC [Suspect]
     Dosage: 400 MG, DAILY
     Dates: start: 20100101, end: 20110121
  7. GLEEVEC [Suspect]
     Indication: CHRONIC EOSINOPHILIC LEUKAEMIA
     Dosage: 200 MG, DAILY
     Dates: start: 20090301
  8. TORASEM [Concomitant]
     Indication: PROPHYLAXIS
     Dates: start: 20091201

REACTIONS (5)
  - DYSPNOEA EXERTIONAL [None]
  - HEMIPLEGIA [None]
  - CEREBRAL INFARCTION [None]
  - CHRONIC EOSINOPHILIC LEUKAEMIA [None]
  - CONGESTIVE CARDIOMYOPATHY [None]
